FAERS Safety Report 24267033 (Version 2)
Quarter: 2024Q3

REPORT INFORMATION
  Report Type: Report from Study
  Country: US (occurrence: None)
  Receive Date: 20240830
  Receipt Date: 20240913
  Transmission Date: 20241017
  Serious: Yes (Hospitalization)
  Sender: ASTRAZENECA
  Company Number: 2024A191871

PATIENT
  Age: 24963 Day
  Sex: Male

DRUGS (1)
  1. BREZTRI [Suspect]
     Active Substance: BUDESONIDE\FORMOTEROL\GLYCOPYRROLATE
     Indication: Chronic obstructive pulmonary disease
     Route: 055
     Dates: start: 20240807, end: 20240810

REACTIONS (9)
  - Muscular weakness [Unknown]
  - Chills [Unknown]
  - Pain [Unknown]
  - Hypertension [Unknown]
  - Decreased appetite [Unknown]
  - Urinary incontinence [Unknown]
  - Tremor [Unknown]
  - Cerebrovascular accident [Unknown]
  - Drug ineffective [Unknown]

NARRATIVE: CASE EVENT DATE: 20240810
